FAERS Safety Report 9182446 (Version 1)
Quarter: 2012Q4

REPORT INFORMATION
  Report Type: 
  Country: US (occurrence: US)
  Receive Date: 20121030
  Receipt Date: 20121030
  Transmission Date: 20130627
  Serious: No
  Sender: FDA-Public Use
  Company Number: US-GLAXOSMITHKLINE-A0975952A

PATIENT
  Age: 41 Year
  Sex: Male

DRUGS (3)
  1. IMITREX [Suspect]
     Indication: CLUSTER HEADACHE
     Route: 045
     Dates: start: 199708, end: 199708
  2. PREDNISONE [Concomitant]
  3. VERAPAMIL [Concomitant]

REACTIONS (2)
  - Nausea [Recovered/Resolved]
  - Drug ineffective [Unknown]
